FAERS Safety Report 9377395 (Version 1)
Quarter: 2013Q3

REPORT INFORMATION
  Report Type: Spontaneous
  Country: BR (occurrence: BR)
  Receive Date: 20130701
  Receipt Date: 20130701
  Transmission Date: 20140515
  Serious: Yes (Other)
  Sender: FDA-Public Use
  Company Number: PHHY2013BR067113

PATIENT
  Sex: Female
  Weight: 86 kg

DRUGS (6)
  1. RITALIN LA [Suspect]
     Indication: DEPRESSION
     Dosage: 1 DF(IN THE MORNING), QD
     Route: 048
     Dates: start: 201304, end: 20130618
  2. RITALIN LA [Suspect]
     Indication: OFF LABEL USE
  3. PAROXETINE [Concomitant]
     Indication: PANIC DISORDER
     Dosage: 3 DF, QD
     Route: 048
  4. SEROQUEL [Concomitant]
     Indication: BIPOLAR DISORDER
     Dosage: 100 MG, QD (IN THE MORNING)
     Route: 048
  5. SEROQUEL [Concomitant]
     Dosage: 400 MG (2 TABLETS OF 200 MG AT NIGHT), QD
     Route: 048
  6. RIVOTRIL [Concomitant]
     Indication: PANIC DISORDER
     Dosage: 2 DF, QD

REACTIONS (4)
  - Drug withdrawal syndrome [Not Recovered/Not Resolved]
  - Apathy [Not Recovered/Not Resolved]
  - Somnolence [Not Recovered/Not Resolved]
  - Dizziness [Not Recovered/Not Resolved]
